FAERS Safety Report 20705665 (Version 1)
Quarter: 2022Q2

REPORT INFORMATION
  Report Type: Report from Study
  Country: CA (occurrence: CA)
  Receive Date: 20220413
  Receipt Date: 20220413
  Transmission Date: 20220721
  Serious: Yes (Other)
  Sender: FDA-Public Use
  Company Number: CA-009507513-1908CAN002744

PATIENT
  Sex: Female
  Weight: 75 kg

DRUGS (10)
  1. PEMBROLIZUMAB [Suspect]
     Active Substance: PEMBROLIZUMAB
     Indication: Non-small cell lung cancer metastatic
     Dosage: STRENGTH: 2MG/KG; 200 MILLIGRAM, Q3W
     Route: 042
     Dates: start: 20190712
  2. PEMBROLIZUMAB [Suspect]
     Active Substance: PEMBROLIZUMAB
     Dosage: STRENGTH: 2MG/KG; 200 MILLIGRAM, Q3W
     Route: 042
     Dates: start: 2019
  3. PEMBROLIZUMAB [Suspect]
     Active Substance: PEMBROLIZUMAB
     Dosage: STRENGTH: 2MG/KG; 200 MILLIGRAM, Q3W
     Route: 042
     Dates: start: 2019
  4. PEMBROLIZUMAB [Suspect]
     Active Substance: PEMBROLIZUMAB
     Dosage: STRENGTH: 2MG/KG; 200 MILLIGRAM, Q3W
     Route: 042
     Dates: start: 2020
  5. PEMBROLIZUMAB [Suspect]
     Active Substance: PEMBROLIZUMAB
     Dosage: STRENGTH: 2MG/KG; 200 MILLIGRAM, Q3W
     Route: 042
     Dates: start: 2020
  6. PEMBROLIZUMAB [Suspect]
     Active Substance: PEMBROLIZUMAB
     Dosage: STRENGTH: 2MG/KG; 200 MILLIGRAM, Q3W
     Route: 042
     Dates: start: 2020
  7. PEMBROLIZUMAB [Suspect]
     Active Substance: PEMBROLIZUMAB
     Dosage: 200 MILLIGRAM, CYCLICAL
     Route: 042
  8. PEMBROLIZUMAB [Suspect]
     Active Substance: PEMBROLIZUMAB
     Dosage: 200 MILLIGRAM, CYCLICAL
     Route: 042
  9. CARBOPLATIN [Suspect]
     Active Substance: CARBOPLATIN
     Indication: Product used for unknown indication
     Dosage: DOSAGE FORM::SOLUTION INTRAVENOUS
     Route: 065
  10. DENOSUMAB [Suspect]
     Active Substance: DENOSUMAB
     Indication: Product used for unknown indication
     Dosage: DOSAGE FORM:SOLUTION SUBCUTANEOUS
     Route: 065
     Dates: start: 201909

REACTIONS (21)
  - Appetite disorder [Unknown]
  - Blood pressure abnormal [Unknown]
  - Bone pain [Unknown]
  - Fatigue [Unknown]
  - Inappropriate schedule of product administration [Unknown]
  - Lacrimation increased [Unknown]
  - Liver function test abnormal [Unknown]
  - Localised infection [Unknown]
  - Malaise [Unknown]
  - Nausea [Unknown]
  - Oedema peripheral [Unknown]
  - Pain [Unknown]
  - Platelet count decreased [Unknown]
  - Pulse abnormal [Unknown]
  - Renal impairment [Unknown]
  - Skin discolouration [Unknown]
  - Somnolence [Unknown]
  - Hip arthroplasty [Unknown]
  - Lung operation [Unknown]
  - Inappropriate schedule of product administration [Unknown]
  - Inappropriate schedule of product administration [Unknown]

NARRATIVE: CASE EVENT DATE: 20190101
